FAERS Safety Report 4536375-2 (Version None)
Quarter: 2004Q4

REPORT INFORMATION
  Report Type: 
  Country: None (occurrence: None)
  Receive Date: 20041223
  Receipt Date: 20040908
  Transmission Date: 20050328
  Serious: No
  Sender: FDA-Public Use
  Company Number: US-GLAXOSMITHKLINE-A0524894A

PATIENT
  Sex: Female

DRUGS (1)
  1. FLONASE [Suspect]
     Indication: RHINITIS
     Dosage: 1SPR UNKNOWN
     Route: 045
     Dates: start: 20040101, end: 20040101

REACTIONS (1)
  - HEADACHE [None]
